FAERS Safety Report 4680344-9 (Version None)
Quarter: 2005Q2

REPORT INFORMATION
  Report Type: 
  Country: None (occurrence: None)
  Receive Date: 20050601
  Receipt Date: 20050526
  Transmission Date: 20051028
  Serious: Yes (Death)
  Sender: FDA-Public Use
  Company Number: 05H-083-0299494-00

PATIENT
  Age: 23 Year
  Sex: Male

DRUGS (2)
  1. LIDOCAINE HCL INJ [Suspect]
     Indication: INTENTIONAL MISUSE
  2. COCAINE [Concomitant]

REACTIONS (2)
  - OVERDOSE [None]
  - VENTRICULAR ARRHYTHMIA [None]
